FAERS Safety Report 15059407 (Version 1)
Quarter: 2018Q3

REPORT INFORMATION
  Report Type: Spontaneous
  Country: US (occurrence: US)
  Receive Date: 20180625
  Receipt Date: 20180625
  Transmission Date: 20181010
  Serious: Yes (Life-Threatening, Other)
  Sender: FDA-Public Use
  Company Number: US-BEXIMCO-2018BEX00013

PATIENT
  Age: 22 Year
  Sex: Female

DRUGS (1)
  1. METFORMIN HYDROCHLORIDE. [Suspect]
     Active Substance: METFORMIN HYDROCHLORIDE
     Dosage: UNK, ONCE
     Route: 048

REACTIONS (9)
  - Shock [Recovered/Resolved]
  - Delirium [Recovered/Resolved]
  - Hypertension [Unknown]
  - Intentional overdose [Recovered/Resolved]
  - Electrocardiogram QRS complex prolonged [Unknown]
  - Electrocardiogram QT prolonged [Unknown]
  - Hypoglycaemia [Unknown]
  - Lactic acidosis [Unknown]
  - Lethargy [Recovered/Resolved]
